FAERS Safety Report 15944180 (Version 1)
Quarter: 2019Q1

REPORT INFORMATION
  Report Type: Report from Study
  Country: None (occurrence: BR)
  Receive Date: 20190211
  Receipt Date: 20190211
  Transmission Date: 20190417
  Serious: Yes (Hospitalization, Other)
  Sender: FDA-Public Use
  Company Number: BR-ABBVIE-19K-020-2657673-00

PATIENT
  Age: 46 Year
  Sex: Female
  Weight: 110 kg

DRUGS (5)
  1. VITAMIN D [Concomitant]
     Active Substance: CHOLECALCIFEROL
     Indication: PRODUCT USED FOR UNKNOWN INDICATION
  2. HUMIRA [Suspect]
     Active Substance: ADALIMUMAB
     Indication: PSORIATIC ARTHROPATHY
     Route: 058
     Dates: start: 20160720, end: 20181220
  3. AMINAPHTONE [Concomitant]
     Indication: BLOOD DISORDER
  4. METHOTREXATE. [Concomitant]
     Active Substance: METHOTREXATE
     Indication: PSORIATIC ARTHROPATHY
  5. FOLIC ACID. [Concomitant]
     Active Substance: FOLIC ACID
     Indication: VITAMIN SUPPLEMENTATION

REACTIONS (3)
  - Abdominal hernia [Recovered/Resolved]
  - Leiomyoma [Recovered/Resolved]
  - Hysterectomy [Recovered/Resolved]

NARRATIVE: CASE EVENT DATE: 20190122
